FAERS Safety Report 5349290-1 (Version None)
Quarter: 2007Q2

REPORT INFORMATION
  Report Type: 
  Country: None (occurrence: None)
  Receive Date: 20070607
  Receipt Date: 20070531
  Transmission Date: 20071010
  Serious: Yes (Hospitalization)
  Sender: FDA-Public Use
  Company Number: B0386846A

PATIENT
  Age: 95 Year
  Sex: Male

DRUGS (8)
  1. VALTREX [Suspect]
     Indication: HERPES ZOSTER
     Route: 048
     Dates: start: 20050617, end: 20050619
  2. INDIGESTION MEDICATION [Concomitant]
     Route: 065
  3. ARTIST [Concomitant]
     Indication: HYPERTENSION
     Dosage: 10MG PER DAY
     Route: 048
  4. MICARDIS [Concomitant]
     Indication: HYPERTENSION
     Dosage: 40MG PER DAY
     Route: 048
  5. DIART [Concomitant]
     Dosage: 60MG PER DAY
     Route: 048
  6. FUROSEMIDE [Concomitant]
     Dosage: 40MG PER DAY
     Route: 048
  7. JAPANESE MEDICATION [Concomitant]
     Dosage: 9U PER DAY
     Route: 048
  8. ODRIC [Concomitant]
     Indication: HYPERTENSION
     Dosage: 1U PER DAY
     Route: 048

REACTIONS (4)
  - ALTERED STATE OF CONSCIOUSNESS [None]
  - AZOTAEMIA [None]
  - CONVULSION [None]
  - OVERDOSE [None]
